FAERS Safety Report 6082466-7 (Version None)
Quarter: 2009Q1

REPORT INFORMATION
  Report Type: 
  Country: None (occurrence: None)
  Receive Date: 20090218
  Receipt Date: 20090206
  Transmission Date: 20090719
  Serious: Yes (Hospitalization)
  Sender: FDA-Public Use
  Company Number: FR-WYE-H08158809

PATIENT
  Age: 71 Year
  Sex: Female

DRUGS (8)
  1. INIPOMP [Suspect]
     Dosage: UNKNOWN
     Route: 048
     Dates: end: 20090102
  2. VOLTARENE [Suspect]
     Dosage: UNKNOWN
     Route: 048
     Dates: start: 20081201, end: 20090102
  3. STABLON [Concomitant]
     Dosage: UNKNOWN
  4. DOMPERIDONE [Suspect]
     Dosage: UNKNOWN
     Route: 048
     Dates: end: 20090104
  5. PRAVASTATINE ^SQUIBB^ [Concomitant]
     Dosage: UNKNOWN
     Dates: end: 20090104
  6. BETAHISTINE [Concomitant]
     Dosage: UNKNOWN
  7. MONO-TILDIEM [Suspect]
     Dosage: UNKNOWN
     Route: 048
     Dates: start: 20081221, end: 20081229
  8. ALDALIX [Suspect]
     Dosage: UNKNOWN
     Route: 048
     Dates: end: 20090104

REACTIONS (1)
  - DERMATITIS EXFOLIATIVE [None]
